FAERS Safety Report 7000538-7 (Version None)
Quarter: 2010Q3

REPORT INFORMATION
  Report Type: 
  Country: None (occurrence: None)
  Receive Date: 20100920
  Receipt Date: 20070531
  Transmission Date: 20110219
  Serious: Yes (Other)
  Sender: FDA-Public Use
  Company Number: US-ASTRAZENECA-2006UW12150

PATIENT
  Age: 43 Year
  Sex: Male
  Weight: 77.1 kg

DRUGS (14)
  1. SEROQUEL [Suspect]
     Indication: MENTAL DISORDER
     Route: 048
     Dates: start: 20000101, end: 20030101
  2. SEROQUEL [Suspect]
     Indication: SCHIZOPHRENIA
     Route: 048
     Dates: start: 20000101, end: 20030101
  3. SEROQUEL [Suspect]
     Dosage: 100 MG - 300 MG , AT NIGHT
     Route: 048
     Dates: start: 20020319
  4. SEROQUEL [Suspect]
     Dosage: 100 MG - 300 MG , AT NIGHT
     Route: 048
     Dates: start: 20020319
  5. ABILIFY [Concomitant]
  6. GEODON [Concomitant]
  7. NAVANE [Concomitant]
  8. ZYPREXA [Concomitant]
  9. TEMAZEPAM [Concomitant]
     Dates: start: 20000602
  10. DESYREL [Concomitant]
     Dosage: 150 MG - 300 MG, AT NIGHT
     Dates: start: 20020430
  11. LEXAPRO [Concomitant]
     Route: 048
     Dates: start: 20030107
  12. CLONAZEPAM [Concomitant]
     Dates: start: 20040809
  13. LORAZEPAM [Concomitant]
     Dates: start: 20040505
  14. ASPIRIN [Concomitant]
     Dates: start: 20040416

REACTIONS (2)
  - DIABETES MELLITUS [None]
  - DIABETES MELLITUS INADEQUATE CONTROL [None]
